FAERS Safety Report 10811829 (Version 1)
Quarter: 2015Q1

REPORT INFORMATION
  Report Type: Report from Study
  Country: PR (occurrence: PR)
  Receive Date: 20150217
  Receipt Date: 20150217
  Transmission Date: 20150721
  Serious: No
  Sender: FDA-Public Use
  Company Number: PR-ABBVIE-14K-131-1294688-00

PATIENT
  Sex: Female

DRUGS (2)
  1. RIDAURA [Concomitant]
     Active Substance: AURANOFIN
     Indication: PRODUCT USED FOR UNKNOWN INDICATION
     Route: 048
  2. HUMIRA [Suspect]
     Active Substance: ADALIMUMAB
     Indication: RHEUMATOID ARTHRITIS
     Route: 058
     Dates: start: 20130801, end: 201409

REACTIONS (2)
  - Drug ineffective [Recovered/Resolved]
  - Laboratory test abnormal [Unknown]
